FAERS Safety Report 12530311 (Version 4)
Quarter: 2016Q3

REPORT INFORMATION
  Report Type: Spontaneous
  Country: TW (occurrence: TW)
  Receive Date: 20160706
  Receipt Date: 20160824
  Transmission Date: 20161109
  Serious: Yes (Hospitalization, Other)
  Sender: FDA-Public Use
  Company Number: TW-AMGEN-TWNSP2016018954

PATIENT
  Age: 78 Year
  Sex: Female

DRUGS (3)
  1. ENBREL [Suspect]
     Active Substance: ETANERCEPT
     Indication: PSORIATIC ARTHROPATHY
     Dosage: 25 MG, 2X/WEEK
     Route: 058
     Dates: start: 20151013, end: 20160322
  2. MTX [Concomitant]
     Active Substance: METHOTREXATE SODIUM
     Dosage: 3 DF, UNK
  3. MTX [Concomitant]
     Active Substance: METHOTREXATE SODIUM
     Dosage: 4 DF, UNK

REACTIONS (17)
  - Musculoskeletal pain [Unknown]
  - Red blood cell sedimentation rate increased [Unknown]
  - Hypoaesthesia [Recovering/Resolving]
  - Road traffic accident [Not Recovered/Not Resolved]
  - Haemorrhage [Not Recovered/Not Resolved]
  - Intentional product misuse [Unknown]
  - Joint swelling [Unknown]
  - Hip fracture [Recovering/Resolving]
  - Discomfort [Not Recovered/Not Resolved]
  - Hypoacusis [Unknown]
  - Haemoglobin decreased [Unknown]
  - Lung carcinoma cell type unspecified stage I [Unknown]
  - Lung neoplasm [Unknown]
  - Lung disorder [Recovering/Resolving]
  - Arthralgia [Unknown]
  - C-reactive protein increased [Unknown]
  - Nasopharyngitis [Unknown]

NARRATIVE: CASE EVENT DATE: 201602
